FAERS Safety Report 9257337 (Version 2)
Quarter: 2014Q1

REPORT INFORMATION
  Report Type: Spontaneous
  Country: US (occurrence: None)
  Receive Date: 20121212
  Receipt Date: 20130314
  Transmission Date: 20141002
  Serious: No
  Sender: FDA-Public Use
  Company Number: 1209USA004816

PATIENT
  Age: 49 Year
  Sex: Female

DRUGS (3)
  1. PEGINTRON [Suspect]
     Indication: HEPATITIS C
     Route: 058
     Dates: start: 20120903
  2. RIBAVIRIN(RIBAVIRIN) CAPSULE [Suspect]
     Indication: HEPATITIS C
     Route: 048
     Dates: start: 20120903
  3. VICTRELIS (BOCEPREVIR) CAPSULE) [Suspect]
     Indication: HEPATITIS C
     Route: 048
     Dates: start: 20121001

REACTIONS (25)
  - Poor quality sleep [None]
  - Myalgia [None]
  - Pruritus [None]
  - Mental disorder [None]
  - Malaise [None]
  - Nervous system disorder [None]
  - Drug dose omission [None]
  - Memory impairment [None]
  - Palpitations [None]
  - Dry skin [None]
  - Chills [None]
  - Pyrexia [None]
  - Headache [None]
  - Somnolence [None]
  - Pain [None]
  - Fatigue [None]
  - Weight increased [None]
  - Insomnia [None]
  - Erythema [None]
  - Rash pruritic [None]
  - Cough [None]
  - Dehydration [None]
  - Rash generalised [None]
  - Pharyngitis [None]
  - Anaemia [None]
